APPROVED DRUG PRODUCT: INDOMETHACIN
Active Ingredient: INDOMETHACIN
Strength: 25MG
Dosage Form/Route: CAPSULE;ORAL
Application: A071148 | Product #001
Applicant: ANI PHARMACEUTICALS INC
Approved: Mar 18, 1987 | RLD: No | RS: No | Type: DISCN